FAERS Safety Report 4893343-9 (Version None)
Quarter: 2006Q1

REPORT INFORMATION
  Report Type: 
  Country: None (occurrence: None)
  Receive Date: 20060127
  Receipt Date: 20060116
  Transmission Date: 20060701
  Serious: Yes (Life-Threatening, Other)
  Sender: FDA-Public Use
  Company Number: US-ABBOTT-06P-163-0322737-00

PATIENT
  Age: 56 Year
  Sex: Female

DRUGS (6)
  1. DEPAKOTE [Suspect]
     Indication: EPILEPSY
     Dosage: 750 MG AM/ 500 MG NOON/ 500 MG 1700/ 750 MG 2200 HRS
  2. DEPAKOTE [Suspect]
  3. DEPAKOTE [Suspect]
  4. CARBAMAZEPINE [Concomitant]
     Indication: EPILEPSY
  5. GABAPENTIN [Concomitant]
     Indication: EPILEPSY
  6. PHENYTOIN [Concomitant]
     Indication: DRUG USE FOR UNKNOWN INDICATION

REACTIONS (3)
  - COMA [None]
  - HYPERAMMONAEMIA [None]
  - RESPIRATORY DISTRESS [None]
